FAERS Safety Report 17125016 (Version 2)
Quarter: 2020Q1

REPORT INFORMATION
  Report Type: Spontaneous
  Country: CH (occurrence: CH)
  Receive Date: 20191206
  Receipt Date: 20200107
  Transmission Date: 20200409
  Serious: Yes (Other)
  Sender: FDA-Public Use
  Company Number: CH-PFIZER INC-2019523842

PATIENT
  Age: 86 Year
  Sex: Female

DRUGS (2)
  1. PREGABALIN PFIZER [Suspect]
     Active Substance: PREGABALIN
     Indication: POLYNEUROPATHY
     Dosage: 25 MG, 2X/DAY (MORNINGS AND EVENINGS)
  2. LYRICA [Suspect]
     Active Substance: PREGABALIN
     Indication: POLYNEUROPATHY
     Dosage: UNK (SINCE 3 TO 4 MONTHS)

REACTIONS (1)
  - Pulmonary oedema [Unknown]
